FAERS Safety Report 5708800-2 (Version None)
Quarter: 2008Q2

REPORT INFORMATION
  Report Type: 
  Country: None (occurrence: None)
  Receive Date: 20080416
  Receipt Date: 20080401
  Transmission Date: 20081010
  Serious: Yes (Hospitalization, Other)
  Sender: FDA-Public Use
  Company Number: 2008S1005416

PATIENT
  Age: 8 Year

DRUGS (6)
  1. ENALAPRIL MALEATE [Suspect]
     Indication: HYPERTENSION
     Dosage: 5 MG;TWICE A DAY;ORAL
     Route: 048
     Dates: start: 20080315, end: 20080316
  2. CYCLOSPORINE [Suspect]
     Indication: NEPHROTIC SYNDROME
     Dosage: 60 MG;TWICE A DAY;ORAL
     Route: 048
     Dates: start: 20020315, end: 20080316
  3. AMLODIPINE [Concomitant]
  4. MYCOPHENOLATE MOFETIL [Concomitant]
  5. OMEPRAZOLE [Concomitant]
  6. PREDNISOLONE [Concomitant]

REACTIONS (4)
  - DILATATION INTRAHEPATIC DUCT ACQUIRED [None]
  - HEPATOTOXICITY [None]
  - LIVER FUNCTION TEST ABNORMAL [None]
  - VENOOCCLUSIVE DISEASE [None]
